FAERS Safety Report 9760256 (Version 2)
Quarter: 2015Q3

REPORT INFORMATION
  Report Type: Spontaneous
  Country: US (occurrence: US)
  Receive Date: 20131216
  Receipt Date: 20150806
  Transmission Date: 20151125
  Serious: No
  Sender: FDA-Public Use
  Company Number: US-GILEAD-2010-0028375

PATIENT
  Age: 46 Year
  Sex: Female

DRUGS (19)
  1. FUROSEMIDE. [Concomitant]
     Active Substance: FUROSEMIDE
  2. METOPROLOL [Concomitant]
     Active Substance: METOPROLOL
  3. KCL [Concomitant]
     Active Substance: POTASSIUM CHLORIDE
  4. HCTZ [Concomitant]
     Active Substance: HYDROCHLOROTHIAZIDE
  5. MIRAPEX [Concomitant]
     Active Substance: PRAMIPEXOLE DIHYDROCHLORIDE
  6. TRAMADOL. [Concomitant]
     Active Substance: TRAMADOL
  7. PROAIR HFA [Concomitant]
     Active Substance: ALBUTEROL SULFATE
  8. LISINOPRIL. [Concomitant]
     Active Substance: LISINOPRIL
  9. PREDNISONE. [Concomitant]
     Active Substance: PREDNISONE
  10. PARACETAMOL/HYDROCODONE BITARTRATE [Concomitant]
  11. XALATAN [Concomitant]
     Active Substance: LATANOPROST
  12. DICLOFENAC [Concomitant]
     Active Substance: DICLOFENAC
  13. SINAREST [Concomitant]
  14. LETAIRIS [Suspect]
     Active Substance: AMBRISENTAN
     Indication: FLUID RETENTION
     Route: 048
     Dates: start: 20100304, end: 20100314
  15. LEVOXYL [Concomitant]
     Active Substance: LEVOTHYROXINE SODIUM
  16. REVATIO [Concomitant]
     Active Substance: SILDENAFIL CITRATE
  17. PAMELOR [Concomitant]
     Active Substance: NORTRIPTYLINE HYDROCHLORIDE
  18. CLEOCIN [Concomitant]
     Active Substance: CLINDAMYCIN PHOSPHATE
  19. NAPROXEN. [Concomitant]
     Active Substance: NAPROXEN

REACTIONS (4)
  - Fluid retention [Recovered/Resolved]
  - Muscle spasms [Recovered/Resolved]
  - Nausea [Recovered/Resolved]
  - Vomiting [Recovered/Resolved]

NARRATIVE: CASE EVENT DATE: 20100307
